FAERS Safety Report 10049669 (Version 1)
Quarter: 2014Q1

REPORT INFORMATION
  Report Type: Spontaneous
  Country: FR (occurrence: None)
  Receive Date: 20140328
  Receipt Date: 20140328
  Transmission Date: 20141002
  Serious: Yes (Other)
  Sender: FDA-Public Use
  Company Number: 2014P1002503

PATIENT
  Age: 75 Year
  Sex: Female

DRUGS (2)
  1. AMOXICILLIN [Suspect]
  2. LANSOPRAZOLE [Suspect]

REACTIONS (1)
  - Drug reaction with eosinophilia and systemic symptoms [None]
